FAERS Safety Report 26117790 (Version 1)
Quarter: 2025Q4

REPORT INFORMATION
  Report Type: Spontaneous
  Country: CN (occurrence: CN)
  Receive Date: 20251203
  Receipt Date: 20251203
  Transmission Date: 20260118
  Serious: Yes (Hospitalization)
  Sender: EISAI
  Company Number: CN-Eisai-EC-2025-200894

PATIENT
  Age: 68 Year
  Sex: Male

DRUGS (3)
  1. LENVATINIB [Suspect]
     Active Substance: LENVATINIB
     Indication: Thyroid cancer
     Dosage: FREQUENCY UNKNOWN
     Route: 048
     Dates: start: 2025, end: 2025
  2. LENVATINIB [Suspect]
     Active Substance: LENVATINIB
     Dosage: (DOSE REDUCED) DOSE AND FREQUENCY UNKNOWN
     Route: 048
     Dates: start: 2025, end: 2025
  3. LEVOTHYROXINE SODIUM [Concomitant]
     Active Substance: LEVOTHYROXINE SODIUM
     Indication: Thyroid cancer
     Route: 048

REACTIONS (1)
  - Epilepsy [Recovered/Resolved]

NARRATIVE: CASE EVENT DATE: 20250101
